FAERS Safety Report 14901863 (Version 1)
Quarter: 2018Q2

REPORT INFORMATION
  Report Type: Spontaneous
  Country: SA (occurrence: SA)
  Receive Date: 20180516
  Receipt Date: 20180516
  Transmission Date: 20180711
  Serious: Yes (Hospitalization)
  Sender: FDA-Public Use
  Company Number: SA-BIOMARINAP-SA-2018-118202

PATIENT
  Age: 3 Year
  Sex: Female
  Weight: 10 kg

DRUGS (1)
  1. VIMIZIM [Suspect]
     Active Substance: ELOSULFASE ALFA
     Indication: MUCOPOLYSACCHARIDOSIS IV
     Dosage: 10 MG, QW
     Route: 042
     Dates: start: 20171205

REACTIONS (4)
  - Hypoacusis [Recovering/Resolving]
  - Pain in extremity [Recovering/Resolving]
  - Abdominal discomfort [Recovering/Resolving]
  - Abdominal pain [Recovering/Resolving]

NARRATIVE: CASE EVENT DATE: 20180510
